FAERS Safety Report 10392232 (Version 6)
Quarter: 2014Q4

REPORT INFORMATION
  Report Type: Report from Study
  Country: BR (occurrence: BR)
  Receive Date: 20140819
  Receipt Date: 20141105
  Transmission Date: 20150528
  Serious: Yes (Other)
  Sender: FDA-Public Use
  Company Number: BR-ROCHE-1401352

PATIENT
  Sex: Female
  Weight: 88 kg

DRUGS (8)
  1. ACTEMRA [Suspect]
     Active Substance: TOCILIZUMAB
     Indication: RHEUMATOID ARTHRITIS
     Dosage: THE MOST RECENT INFUSION WAS ON 16/JUL2/014.
     Route: 065
     Dates: start: 201110, end: 201407
  2. ARADOIS [Concomitant]
     Active Substance: LOSARTAN POTASSIUM
     Indication: HYPERTENSION
  3. ATACAND [Concomitant]
     Active Substance: CANDESARTAN CILEXETIL
  4. ULTRACET [Concomitant]
     Active Substance: ACETAMINOPHEN\TRAMADOL HYDROCHLORIDE
     Indication: PAIN
  5. CORTISONE [Suspect]
     Active Substance: CORTISONE\HYDROCORTISONE
     Indication: PRODUCT USED FOR UNKNOWN INDICATION
     Route: 065
  6. CHONDROITIN [Concomitant]
     Active Substance: CHONDROITIN
  7. HARPAGOPHYTUM PROCUMBENS [Concomitant]
  8. HYDROXYCHLOROQUINE [Suspect]
     Active Substance: HYDROXYCHLOROQUINE
     Indication: JOINT SWELLING
     Dosage: HALF TABLET
     Route: 065

REACTIONS (16)
  - Pain [Not Recovered/Not Resolved]
  - Choking [Recovered/Resolved]
  - Bone disorder [Not Recovered/Not Resolved]
  - Joint swelling [Not Recovered/Not Resolved]
  - Hand deformity [Unknown]
  - Nausea [Recovered/Resolved]
  - Fatigue [Recovering/Resolving]
  - Hepatic steatosis [Recovered/Resolved]
  - Weight decreased [Not Recovered/Not Resolved]
  - Finger deformity [Recovered/Resolved]
  - Vein disorder [Not Recovered/Not Resolved]
  - Dizziness [Recovered/Resolved]
  - Muscular weakness [Not Recovered/Not Resolved]
  - Headache [Recovered/Resolved]
  - Arthritis [Recovering/Resolving]
  - Pain in extremity [Unknown]

NARRATIVE: CASE EVENT DATE: 2014
